FAERS Safety Report 19936157 (Version 2)
Quarter: 2022Q1

REPORT INFORMATION
  Report Type: Spontaneous
  Country: HU (occurrence: HU)
  Receive Date: 20211008
  Receipt Date: 20220112
  Transmission Date: 20220423
  Serious: Yes (Other)
  Sender: FDA-Public Use
  Company Number: HU-BRISTOL-MYERS SQUIBB COMPANY-BMS-2021-102449

PATIENT
  Age: 59 Year
  Sex: Female

DRUGS (1)
  1. OPDIVO [Suspect]
     Active Substance: NIVOLUMAB
     Indication: Renal cell carcinoma
     Dosage: UNK UNK, Q2WK
     Route: 065
     Dates: start: 201904

REACTIONS (3)
  - Myocardial infarction [Unknown]
  - Atherosclerotic plaque rupture [Unknown]
  - Periostitis [Recovered/Resolved]

NARRATIVE: CASE EVENT DATE: 20190901
